FAERS Safety Report 7496045-8 (Version None)
Quarter: 2011Q2

REPORT INFORMATION
  Report Type: 
  Country: None (occurrence: None)
  Receive Date: 20110523
  Receipt Date: 20110504
  Transmission Date: 20111010
  Serious: No
  Sender: FDA-Public Use
  Company Number: US-B.I. PHARMACEUTICALS,INC./RIDGEFIELD-2011-BP-05216BP

PATIENT
  Sex: Female

DRUGS (11)
  1. PROZAC [Concomitant]
  2. PRADAXA [Suspect]
     Indication: ATRIAL FIBRILLATION
  3. ASPIRIN [Concomitant]
  4. XOPENEX [Concomitant]
     Route: 055
  5. MULTAQ [Concomitant]
     Dosage: 800 MG
  6. SINGULAIR [Concomitant]
  7. LASIX [Concomitant]
  8. PURPLE PILL [Concomitant]
  9. SPIRIVA [Concomitant]
  10. CLONAZEPAM [Concomitant]
  11. TOPROL-XL [Concomitant]

REACTIONS (1)
  - THROAT IRRITATION [None]
